FAERS Safety Report 6028290-2 (Version None)
Quarter: 2009Q1

REPORT INFORMATION
  Report Type: 
  Country: None (occurrence: None)
  Receive Date: 20090102
  Receipt Date: 20081223
  Transmission Date: 20090719
  Serious: Yes (Other)
  Sender: FDA-Public Use
  Company Number: 2008-04597

PATIENT
  Age: 68 Year
  Sex: Male

DRUGS (2)
  1. VELCADE [Suspect]
     Indication: MULTIPLE MYELOMA
     Dosage: 1.3 MG/M2
     Dates: start: 20060502
  2. PAMIDRONATE DISODIUM [Concomitant]

REACTIONS (3)
  - DIABETES MELLITUS [None]
  - HYPERVISCOSITY SYNDROME [None]
  - RETINAL VEIN THROMBOSIS [None]
